FAERS Safety Report 19159843 (Version 1)
Quarter: 2021Q2

REPORT INFORMATION
  Report Type: Spontaneous
  Country: GB (occurrence: GB)
  Receive Date: 20210420
  Receipt Date: 20210420
  Transmission Date: 20210717
  Serious: Yes (Other)
  Sender: FDA-Public Use
  Company Number: GB-JNJFOC-20210432328

PATIENT
  Age: 67 Year
  Sex: Female
  Weight: 94.59 kg

DRUGS (6)
  1. DOXYCYCLINE. [Concomitant]
     Active Substance: DOXYCYCLINE
     Dosage: TWO IMMEDIATELY THEN ONE DAILY
     Dates: start: 20210319
  2. STELARA [Suspect]
     Active Substance: USTEKINUMAB
     Indication: IMMUNODEFICIENCY
     Dosage: 90MG/1ML
     Route: 058
  3. AMOXICILLIN. [Concomitant]
     Active Substance: AMOXICILLIN
     Dates: start: 20210312
  4. QUESTRAN [Concomitant]
     Active Substance: CHOLESTYRAMINE
     Dates: start: 20210204
  5. LOPERAMIDE [Concomitant]
     Active Substance: LOPERAMIDE
     Dosage: AT MID DAY
     Dates: start: 20210112
  6. RAMIPRIL. [Concomitant]
     Active Substance: RAMIPRIL
     Dates: start: 20210112, end: 20210316

REACTIONS (5)
  - Rhinitis [Not Recovered/Not Resolved]
  - Off label use [Unknown]
  - Fatigue [Unknown]
  - Lower respiratory tract infection [Unknown]
  - Product use in unapproved indication [Unknown]

NARRATIVE: CASE EVENT DATE: 20191121
